FAERS Safety Report 8821252 (Version 1)
Quarter: 2012Q4

REPORT INFORMATION
  Report Type: 
  Country: US (occurrence: US)
  Receive Date: 20121002
  Receipt Date: 20121002
  Transmission Date: 20130627
  Serious: No
  Sender: FDA-Public Use
  Company Number: US-ASTRAZENECA-2012SE74956

PATIENT
  Age: 27 Year
  Sex: Female

DRUGS (1)
  1. SEROQUEL XR [Suspect]
     Indication: BIPOLAR II DISORDER
     Route: 048

REACTIONS (2)
  - Feeling abnormal [Unknown]
  - Mood altered [Unknown]
